FAERS Safety Report 20076380 (Version 1)
Quarter: 2021Q4

REPORT INFORMATION
  Report Type: Report from Study
  Country: KR (occurrence: None)
  Receive Date: 20211116
  Receipt Date: 20211116
  Transmission Date: 20220304
  Serious: Yes (Hospitalization)
  Sender: FDA-Public Use
  Company Number: KR-ROCHE-2891770

PATIENT
  Age: 76 Year
  Sex: Male
  Weight: 57.7 kg

DRUGS (7)
  1. COBIMETINIB [Suspect]
     Active Substance: COBIMETINIB
     Indication: Metastatic neoplasm
     Dosage: STOPPED TEMPORARILY ON 28/MAY/2021, DUE TO ACNEIFORM SKIN RASH
     Route: 048
     Dates: start: 20210518, end: 20210528
  2. DESOWEN [Concomitant]
     Active Substance: DESONIDE
     Dates: start: 20210525
  3. ACETAPHEN [Concomitant]
  4. HANA PETHIDINE HCL [Concomitant]
  5. TRAMOL [PARACETAMOL] [Concomitant]
  6. DEXTROSE [Concomitant]
     Active Substance: DEXTROSE
  7. MAXIPIME [Concomitant]
     Active Substance: CEFEPIME HYDROCHLORIDE

REACTIONS (2)
  - Pneumonitis [Recovered/Resolved]
  - Dermatitis acneiform [Not Recovered/Not Resolved]

NARRATIVE: CASE EVENT DATE: 20210523
